FAERS Safety Report 8569725 (Version 5)
Quarter: 2013Q2

REPORT INFORMATION
  Report Type: Report from Study
  Country: TR (occurrence: TR)
  Receive Date: 20120518
  Receipt Date: 20130606
  Transmission Date: 20140414
  Serious: Yes (Hospitalization)
  Sender: FDA-Public Use
  Company Number: TR-GILEAD-2012-0054867

PATIENT
  Age: 18 Year
  Sex: Male

DRUGS (3)
  1. TENOFOVIR DISOPROXIL FUMARATE [Suspect]
     Indication: CHRONIC HEPATITIS B
     Dosage: 300 MG, QD
     Route: 048
     Dates: start: 20090716, end: 20120225
  2. TENOFOVIR DISOPROXIL FUMARATE [Suspect]
     Dosage: 300 MG, QD
     Route: 048
     Dates: start: 20120228, end: 20130404
  3. VITAMIN D                          /00318501/ [Concomitant]
     Dosage: UNK
     Dates: start: 20090716

REACTIONS (2)
  - Tibia fracture [Recovered/Resolved]
  - Patella fracture [Recovered/Resolved]
